FAERS Safety Report 10459879 (Version 6)
Quarter: 2017Q3

REPORT INFORMATION
  Report Type: Report from Study
  Country: AU (occurrence: AU)
  Receive Date: 20140917
  Receipt Date: 20170926
  Transmission Date: 20171127
  Serious: Yes (Hospitalization, Other)
  Sender: FDA-Public Use
  Company Number: PHHY2012AU030424

PATIENT
  Age: 32 Year
  Sex: Male

DRUGS (15)
  1. CLOZARIL [Suspect]
     Active Substance: CLOZAPINE
     Dosage: 500 MG, NOCTE
     Route: 048
  2. QUETIAPINE. [Concomitant]
     Active Substance: QUETIAPINE
     Indication: PRODUCT USED FOR UNKNOWN INDICATION
     Dosage: 1 G, NOCTE
     Route: 065
  3. CLOZARIL [Suspect]
     Active Substance: CLOZAPINE
     Dosage: 350 MG
     Route: 048
     Dates: start: 2011
  4. LITHIUM. [Suspect]
     Active Substance: LITHIUM
     Indication: PRODUCT USED FOR UNKNOWN INDICATION
     Dosage: 1 G
     Route: 065
     Dates: start: 2011
  5. CLOZARIL [Suspect]
     Active Substance: CLOZAPINE
     Dosage: UNK
     Route: 048
     Dates: start: 20170816, end: 20170907
  6. LITHIUM. [Suspect]
     Active Substance: LITHIUM
     Dosage: 750 MG, (250 MG IN MORNNING ANF 500 MG IN NIGHT)
     Route: 065
     Dates: start: 201108
  7. THYROXINE [Concomitant]
     Active Substance: LEVOTHYROXINE
     Indication: PRODUCT USED FOR UNKNOWN INDICATION
     Dosage: 250 UG, MANE
     Route: 065
  8. VALPROIC ACID. [Suspect]
     Active Substance: VALPROIC ACID
     Indication: PROPHYLAXIS
     Dosage: 800 MG, NOCTE
     Route: 065
     Dates: start: 201110, end: 20120328
  9. CLOZARIL [Suspect]
     Active Substance: CLOZAPINE
     Indication: SCHIZOPHRENIA
     Dosage: 550 MG
     Route: 048
     Dates: start: 20100225
  10. CLOZARIL [Suspect]
     Active Substance: CLOZAPINE
     Dosage: 425 MG, NOCTE
     Route: 048
     Dates: start: 201110, end: 20120328
  11. GEMFIBROZIL. [Concomitant]
     Active Substance: GEMFIBROZIL
     Indication: PRODUCT USED FOR UNKNOWN INDICATION
     Dosage: 600 MG, BID
     Route: 065
  12. ATORVASTATIN [Concomitant]
     Active Substance: ATORVASTATIN
     Indication: PRODUCT USED FOR UNKNOWN INDICATION
     Dosage: 20 MG, NOCTE
     Route: 065
  13. QUETIAPINE XR [Concomitant]
     Active Substance: QUETIAPINE
     Indication: PRODUCT USED FOR UNKNOWN INDICATION
     Dosage: UNK, NOCTE
     Route: 065
  14. HALOPERIDOL. [Concomitant]
     Active Substance: HALOPERIDOL
     Indication: PRODUCT USED FOR UNKNOWN INDICATION
     Dosage: 5 MG, BID
     Route: 065
  15. HALOPERIDOL. [Concomitant]
     Active Substance: HALOPERIDOL
     Dosage: 10 MG, NOCTE
     Route: 065

REACTIONS (20)
  - Haematocrit decreased [Not Recovered/Not Resolved]
  - Sleep disorder [Unknown]
  - Neutrophil count decreased [Recovered/Resolved]
  - Psychotic disorder [Not Recovered/Not Resolved]
  - Pyromania [Unknown]
  - Malaise [Unknown]
  - Antipsychotic drug level increased [Not Recovered/Not Resolved]
  - Euphoric mood [Unknown]
  - White blood cell count decreased [Recovered/Resolved]
  - Schizophrenia [Unknown]
  - Hallucination [Unknown]
  - Haemoglobin decreased [Unknown]
  - Persecutory delusion [Unknown]
  - Delusion [Unknown]
  - White blood cell count decreased [Recovered/Resolved]
  - Abnormal behaviour [Unknown]
  - Hallucination, auditory [Unknown]
  - Homicidal ideation [Unknown]
  - Neutropenia [Recovered/Resolved]
  - Viral infection [Unknown]

NARRATIVE: CASE EVENT DATE: 20120328
